FAERS Safety Report 17441561 (Version 5)
Quarter: 2021Q2

REPORT INFORMATION
  Report Type: Report from Study
  Country: US (occurrence: US)
  Receive Date: 20200220
  Receipt Date: 20210602
  Transmission Date: 20210716
  Serious: Yes (Hospitalization)
  Sender: FDA-Public Use
  Company Number: US-JNJFOC-20200213081

PATIENT
  Age: 22 Year
  Sex: Female
  Weight: 55.8 kg

DRUGS (10)
  1. TRIAMCINOLONE ACETONIDE. [Concomitant]
     Active Substance: TRIAMCINOLONE ACETONIDE
  2. INFLIXIMAB, RECOMBINANT [Suspect]
     Active Substance: INFLIXIMAB
     Indication: CROHN^S DISEASE
     Route: 042
     Dates: start: 20040122, end: 201712
  3. STELARA [Suspect]
     Active Substance: USTEKINUMAB
     Indication: PRODUCT USED FOR UNKNOWN INDICATION
     Route: 058
     Dates: start: 20180117
  4. KETOCONAZOLE. [Concomitant]
     Active Substance: KETOCONAZOLE
  5. FERROUS SULFATE. [Concomitant]
     Active Substance: FERROUS SULFATE
  6. HYOSCYAMINE. [Concomitant]
     Active Substance: HYOSCYAMINE
  7. OMEPRAZOLE. [Concomitant]
     Active Substance: OMEPRAZOLE
  8. FLUOCINONIDE. [Concomitant]
     Active Substance: FLUOCINONIDE
  9. 5?ASA [Concomitant]
     Active Substance: MESALAMINE
     Route: 054
  10. MOMETASONE [Concomitant]
     Active Substance: MOMETASONE

REACTIONS (1)
  - Viral infection [Recovered/Resolved]

NARRATIVE: CASE EVENT DATE: 20200126
